APPROVED DRUG PRODUCT: SIROLIMUS
Active Ingredient: SIROLIMUS
Strength: 0.5MG
Dosage Form/Route: TABLET;ORAL
Application: A201676 | Product #003 | TE Code: AB
Applicant: ZYDUS PHARMACEUTICALS USA INC
Approved: Jan 8, 2014 | RLD: No | RS: No | Type: RX